FAERS Safety Report 22155817 (Version 1)
Quarter: 2023Q1

REPORT INFORMATION
  Report Type: Spontaneous
  Country: US (occurrence: None)
  Receive Date: 20230329
  Receipt Date: 20230329
  Transmission Date: 20230418
  Serious: Yes (Death)
  Sender: FDA-Public Use
  Company Number: None

PATIENT
  Sex: Male

DRUGS (17)
  1. EVEROLIMUS [Suspect]
     Active Substance: EVEROLIMUS
     Indication: Renal cancer
     Route: 048
     Dates: start: 20230322, end: 202303
  2. AMLODIPINE TAB [Concomitant]
  3. CABOMETYX [Concomitant]
     Active Substance: CABOZANTINIB S-MALATE
  4. CINACALCET [Concomitant]
  5. HYDROMORPHONE [Concomitant]
     Active Substance: HYDROMORPHONE
  6. IRON TAB [Concomitant]
  7. LENVIMA [Concomitant]
     Active Substance: LENVATINIB
  8. METOPROL SUC [Concomitant]
  9. MYCOPHENOLAT TAB [Concomitant]
  10. NEXIUM CAP [Concomitant]
  11. ONDANSETRON TAB [Concomitant]
  12. PEPCID AC [Concomitant]
  13. PREDNISONE [Concomitant]
     Active Substance: PREDNISONE
  14. PROGRAF [Concomitant]
     Active Substance: TACROLIMUS
  15. ROSUVASTATIN [Concomitant]
     Active Substance: ROSUVASTATIN
  16. SUCRALFATE TAB [Concomitant]
  17. VITAMIN D3 CAP [Concomitant]

REACTIONS (1)
  - Death [None]
